FAERS Safety Report 11480176 (Version 2)
Quarter: 2015Q4

REPORT INFORMATION
  Report Type: Report from Study
  Country: PL (occurrence: PL)
  Receive Date: 20150909
  Receipt Date: 20151222
  Transmission Date: 20160304
  Serious: Yes (Hospitalization)
  Sender: FDA-Public Use
  Company Number: PL-ACTAVIS-2015-19106

PATIENT
  Age: 38 Year
  Sex: Male
  Weight: 69 kg

DRUGS (30)
  1. FENTANYL. [Concomitant]
     Active Substance: FENTANYL
     Indication: ANALGESIC THERAPY
     Dosage: 50-75 UG/H, EVERY 72 HOURS
     Route: 065
     Dates: start: 20141208
  2. METOCLOPRAMIDE. [Concomitant]
     Active Substance: METOCLOPRAMIDE
     Indication: PROPHYLAXIS OF NAUSEA AND VOMITING
     Dosage: 10 MG, THREE TIMES DAILY
     Route: 042
     Dates: start: 20141205, end: 20141216
  3. TAZOCIN [Concomitant]
     Active Substance: PIPERACILLIN SODIUM\TAZOBACTAM SODIUM
     Indication: FEBRILE NEUTROPENIA
     Dosage: 4.5 G, THREE TIMES DAILY
     Route: 042
     Dates: start: 20141222, end: 20141230
  4. FILGRASTIM [Suspect]
     Active Substance: FILGRASTIM
     Indication: CHEMOTHERAPY
     Dosage: 480 ?G, UNKNOWN
     Route: 058
     Dates: start: 20141216, end: 20150102
  5. ORNITHINE ASPARTATE [Concomitant]
     Active Substance: ORNITHINE ASPARTATE
     Indication: PROPHYLAXIS
     Dosage: 2000 MG, THREE TIMES DAILY
     Route: 042
     Dates: start: 20141208, end: 20141222
  6. POTASSIUM CHLORIDE. [Concomitant]
     Active Substance: POTASSIUM CHLORIDE
     Indication: PROPHYLAXIS
     Dosage: 3 G, ONCE DAILY
     Route: 042
     Dates: start: 20141222, end: 20150108
  7. VITACON                            /00032401/ [Concomitant]
     Indication: DISSEMINATED INTRAVASCULAR COAGULATION
     Dosage: 10 MG, ONCE DAILY
     Route: 042
     Dates: start: 20141208
  8. NITRAZEPAM [Concomitant]
     Active Substance: NITRAZEPAM
     Indication: PRODUCT USED FOR UNKNOWN INDICATION
     Dosage: 5 MG, ONCE DAILY
     Route: 048
     Dates: start: 20111208
  9. ATOSSA                             /00955301/ [Concomitant]
     Indication: PROPHYLAXIS OF NAUSEA AND VOMITING
     Dosage: 8 MG, 2-3 TIMES DAILY
     Route: 042
     Dates: start: 20141208, end: 20150107
  10. LACTULOSUM [Concomitant]
     Indication: CONSTIPATION PROPHYLAXIS
     Dosage: 10 ML, 2-3 TIMES DAILY
     Route: 048
     Dates: start: 20141212
  11. HYDROXYZINUM [Concomitant]
     Active Substance: HYDROXYZINE HYDROCHLORIDE
     Indication: ANXIOLYTIC THERAPY
     Dosage: 10 MG, ONCE DAILY
     Route: 048
     Dates: start: 20141208
  12. SODIUM CHLORIDE. [Concomitant]
     Active Substance: SODIUM CHLORIDE
     Indication: FLUID REPLACEMENT
     Dosage: 1000 ML, ONCE DAILY
     Route: 042
     Dates: start: 20141208, end: 20150108
  13. PROURSAN [Concomitant]
     Indication: PROPHYLAXIS
     Dosage: 500 MG, THREE TIMES DAILY
     Route: 065
     Dates: start: 20141208
  14. HEPARIN-FRACTION, SODIUM SALT [Concomitant]
     Active Substance: HEPARIN SODIUM
     Indication: DISSEMINATED INTRAVASCULAR COAGULATION
     Dosage: 5000 IU, ONCE DAILY
     Route: 058
     Dates: start: 20141208, end: 20150108
  15. METOPROLOL TARTRATE. [Concomitant]
     Active Substance: METOPROLOL TARTRATE
     Indication: TACHYCARDIA
     Dosage: 50 MG, FOUR TIMES DAILY
     Route: 048
     Dates: start: 20141208, end: 20150104
  16. ALLUPOL [Concomitant]
     Active Substance: ALLOPURINOL
     Indication: TUMOUR LYSIS SYNDROME
     Dosage: 300-900 MG, ONCE DAILY
     Route: 048
     Dates: start: 20141208
  17. FUROSEMIDUM                        /00032601/ [Concomitant]
     Indication: DIURETIC THERAPY
     Dosage: 20-60 MG, 2-3 TIMES DAILY
     Route: 042
     Dates: start: 20141208, end: 20150108
  18. VINCRISTINE [Concomitant]
     Active Substance: VINCRISTINE
     Indication: PRODUCT USED FOR UNKNOWN INDICATION
     Dosage: 2 MG, ONCE DAILY
     Route: 042
     Dates: start: 20141208, end: 20141208
  19. CYTARABINE PFIZER [Suspect]
     Active Substance: CYTARABINE
     Indication: ACUTE LYMPHOCYTIC LEUKAEMIA
     Dosage: 3.7 G, CYCLIC DAYS 1-6, 4 WEEK CYCLE
     Route: 042
     Dates: start: 20141217, end: 20141222
  20. BETALOC                            /00376902/ [Concomitant]
     Active Substance: METOPROLOL TARTRATE
     Indication: TACHYCARDIA
     Dosage: 5 MG, FOUR TIMES DAILY
     Route: 042
     Dates: start: 20150105, end: 20150108
  21. KALIPOZ [Concomitant]
     Active Substance: POTASSIUM CHLORIDE
     Indication: PROPHYLAXIS
     Dosage: 1173 MG, THREE TIMES DAILY
     Route: 048
     Dates: start: 20141208, end: 20150106
  22. PYRALGIN                           /06276704/ [Concomitant]
     Indication: PROPHYLAXIS
     Dosage: 250 MG, TWICE DAILY
     Route: 042
     Dates: start: 20141208, end: 20141211
  23. ALLUPOL [Concomitant]
     Active Substance: ALLOPURINOL
     Indication: PROPHYLAXIS
  24. OXYCONTIN [Concomitant]
     Active Substance: OXYCODONE HYDROCHLORIDE
     Indication: ANALGESIC THERAPY
     Dosage: 5 MG, AS NEEDED ON DEMAND
     Route: 065
     Dates: start: 20141212
  25. CALPEROS                           /07357001/ [Concomitant]
     Indication: TUMOUR LYSIS SYNDROME
     Dosage: 1000 MG, ONCE DAILY
     Route: 048
     Dates: start: 20141215
  26. FLUDARABINE [Suspect]
     Active Substance: FLUDARABINE PHOSPHATE
     Indication: ACUTE LYMPHOCYTIC LEUKAEMIA
     Dosage: 56 MG, CYCLIC DAYS 2-6, 4 WEEKS CYCLE
     Route: 042
     Dates: start: 20141218, end: 20141222
  27. CYCLONAMINE [Concomitant]
     Active Substance: ETHAMSYLATE
     Indication: THROMBOCYTOPENIA
     Dosage: 500 MG, THREE TIMES DAILY
     Route: 048
     Dates: start: 20141208
  28. DOLARGAN [Concomitant]
     Indication: ANALGESIC THERAPY
     Dosage: 50 MG, 2-3 TIMES DAILY
     Route: 058
     Dates: start: 20141208, end: 20150108
  29. TORECAN [Concomitant]
     Active Substance: THIETHYLPERAZINE MALATE
     Indication: PROPHYLAXIS OF NAUSEA AND VOMITING
     Dosage: 6.5 MG, TWICE DAILY
     Route: 048
     Dates: start: 20141208
  30. MERCAPTOPURINA [Concomitant]
     Indication: PRODUCT USED FOR UNKNOWN INDICATION
     Dosage: 100 MG, ONCE DAILY
     Route: 065
     Dates: start: 20141209, end: 20141216

REACTIONS (1)
  - Pneumonia fungal [Not Recovered/Not Resolved]

NARRATIVE: CASE EVENT DATE: 20141222
